FAERS Safety Report 11055014 (Version 1)
Quarter: 2015Q2

REPORT INFORMATION
  Report Type: Spontaneous
  Country: US (occurrence: None)
  Receive Date: 20150421
  Receipt Date: 20150421
  Transmission Date: 20150821
  Serious: Yes (Life-Threatening, Other)
  Sender: FDA-Public Use
  Company Number: None

PATIENT
  Age: 38 Year
  Sex: Male
  Weight: 81.65 kg

DRUGS (2)
  1. VITAMIN D SUPPLEMENTS [Concomitant]
  2. LYRICA [Suspect]
     Active Substance: PREGABALIN
     Indication: ULNAR NERVE INJURY
     Route: 048

REACTIONS (3)
  - Anger [None]
  - Unevaluable event [None]
  - Memory impairment [None]

NARRATIVE: CASE EVENT DATE: 20141130
